FAERS Safety Report 8479620-3 (Version None)
Quarter: 2012Q2

REPORT INFORMATION
  Report Type: 
  Country: None (occurrence: None)
  Receive Date: 20120629
  Receipt Date: 20120628
  Transmission Date: 20120825
  Serious: No
  Sender: FDA-Public Use
  Company Number: US-PFIZER INC-2012156144

PATIENT
  Sex: Female
  Weight: 55.329 kg

DRUGS (4)
  1. CHANTIX [Suspect]
     Dosage: UNK
     Route: 048
  2. CHANTIX [Suspect]
     Indication: SMOKING CESSATION THERAPY
     Dosage: 0.5 MG, 1X/DAY
     Route: 048
  3. CHANTIX [Suspect]
     Route: 048
  4. CHANTIX [Suspect]
     Dosage: UNK
     Route: 048

REACTIONS (4)
  - NIGHTMARE [None]
  - SLEEP DISORDER [None]
  - NAUSEA [None]
  - IRRITABILITY [None]
